FAERS Safety Report 9257070 (Version 1)
Quarter: 2013Q2

REPORT INFORMATION
  Report Type: Spontaneous
  Country: AT (occurrence: AT)
  Receive Date: 20130426
  Receipt Date: 20130426
  Transmission Date: 20140414
  Serious: Yes (Hospitalization)
  Sender: FDA-Public Use
  Company Number: AT-JNJFOC-20130410940

PATIENT
  Age: 67 Year
  Sex: Female
  Weight: 99 kg

DRUGS (8)
  1. SIMPONI [Suspect]
     Indication: PSORIATIC ARTHROPATHY
     Route: 058
     Dates: start: 201105
  2. EBETREXAT [Concomitant]
     Indication: PSORIATIC ARTHROPATHY
     Route: 048
     Dates: start: 1999
  3. APREDNISLON [Concomitant]
     Route: 065
  4. CONCOR [Concomitant]
     Route: 065
  5. ZANIDIP [Concomitant]
     Route: 065
  6. RHEUTROP [Concomitant]
     Route: 065
  7. AGOPTON [Concomitant]
     Route: 065
  8. THROMBO ASS [Concomitant]
     Route: 065

REACTIONS (1)
  - Ophthalmic herpes zoster [Recovered/Resolved]
